FAERS Safety Report 12450589 (Version 1)
Quarter: 2016Q2

REPORT INFORMATION
  Report Type: Spontaneous
  Country: US (occurrence: US)
  Receive Date: 20160609
  Receipt Date: 20160609
  Transmission Date: 20160815
  Serious: Yes (Other)
  Sender: FDA-Public Use
  Company Number: US-B. BRAUN MEDICAL INC.-1053574

PATIENT
  Age: 58 Year
  Sex: Female

DRUGS (7)
  1. GLUCOSE [Concomitant]
     Active Substance: DEXTROSE
     Route: 042
     Dates: start: 20160307
  2. FLUCONAZOLE. [Concomitant]
     Active Substance: FLUCONAZOLE
     Route: 042
     Dates: start: 20160217, end: 20160301
  3. FLUCONAZOLE. [Concomitant]
     Active Substance: FLUCONAZOLE
     Route: 042
     Dates: start: 20160308, end: 20160328
  4. NUTRILIPID I.V. FAT EMULSION [Suspect]
     Active Substance: SOYBEAN OIL
     Indication: PARENTERAL NUTRITION
     Route: 042
     Dates: start: 20160220, end: 20160331
  5. INTRALIPID [Concomitant]
     Active Substance: EGG PHOSPHOLIPIDS\GLYCERIN\SOYBEAN OIL
     Route: 042
     Dates: start: 20160401
  6. AMINO ACID NOS [Concomitant]
     Route: 042
  7. GLUCOSE [Concomitant]
     Active Substance: DEXTROSE
     Route: 042
     Dates: start: 20160112, end: 20160306

REACTIONS (6)
  - Blood alkaline phosphatase increased [None]
  - Alanine aminotransferase increased [None]
  - Liver function test abnormal [None]
  - Blood bilirubin increased [None]
  - Aspartate aminotransferase increased [None]
  - Bilirubin conjugated increased [None]
